FAERS Safety Report 6203299-4 (Version None)
Quarter: 2009Q2

REPORT INFORMATION
  Report Type: 
  Country: None (occurrence: None)
  Receive Date: 20090522
  Receipt Date: 20090522
  Transmission Date: 20091009
  Serious: Yes (Hospitalization)
  Sender: FDA-Public Use
  Company Number: None

PATIENT
  Sex: Female
  Weight: 60.3 kg

DRUGS (3)
  1. PARAPLATIN [Suspect]
     Dosage: 1197 MG
  2. ERBITUX [Suspect]
     Dosage: 3230 MG
  3. TAXOL [Suspect]
     Dosage: 462 MG

REACTIONS (7)
  - ATRIAL FIBRILLATION [None]
  - BODY TEMPERATURE INCREASED [None]
  - CHILLS [None]
  - DEHYDRATION [None]
  - DYSPHAGIA [None]
  - HYPOPHAGIA [None]
  - HYPOTENSION [None]
